FAERS Safety Report 6998973-6 (Version None)
Quarter: 2010Q3

REPORT INFORMATION
  Report Type: 
  Country: None (occurrence: None)
  Receive Date: 20100920
  Receipt Date: 20100521
  Transmission Date: 20110219
  Serious: No
  Sender: FDA-Public Use
  Company Number: US-ASTRAZENECA-2010SE23629

PATIENT
  Age: 37 Year
  Sex: Female

DRUGS (4)
  1. SEROQUEL XR [Suspect]
     Route: 048
  2. LAMICTAL [Concomitant]
  3. CLONIPINE [Concomitant]
  4. TRYLIPTAL [Concomitant]

REACTIONS (1)
  - BREAST DISCHARGE [None]
